FAERS Safety Report 7181378-5 (Version None)
Quarter: 2010Q4

REPORT INFORMATION
  Report Type: 
  Country: None (occurrence: None)
  Receive Date: 20101221
  Receipt Date: 20100423
  Transmission Date: 20110411
  Serious: Yes (Hospitalization)
  Sender: FDA-Public Use
  Company Number: US-AMGEN-QUU405955

PATIENT

DRUGS (1)
  1. ENBREL [Suspect]
     Indication: PSORIATIC ARTHROPATHY
     Dosage: 25 MG, 2 TIMES/WK
     Route: 058
     Dates: start: 19990101

REACTIONS (4)
  - ARTHRITIS [None]
  - LOCALISED INFECTION [None]
  - PNEUMONIA [None]
  - STAPHYLOCOCCAL INFECTION [None]
